FAERS Safety Report 4648781-6 (Version None)
Quarter: 2005Q2

REPORT INFORMATION
  Report Type: 
  Country: None (occurrence: None)
  Receive Date: 20050429
  Receipt Date: 20030605
  Transmission Date: 20051028
  Serious: Yes (Hospitalization, Other)
  Sender: FDA-Public Use
  Company Number: US-MERCK-0306USA00934

PATIENT
  Age: 44 Year
  Sex: Male

DRUGS (2)
  1. VIOXX [Suspect]
     Route: 048
  2. VIOXX [Suspect]
     Route: 048
     Dates: start: 20040114

REACTIONS (54)
  - AMNESIA [None]
  - ANAEMIA [None]
  - ANAL FISTULA [None]
  - ANEURYSM RUPTURED [None]
  - ANGINA UNSTABLE [None]
  - ANXIETY [None]
  - APPENDICITIS PERFORATED [None]
  - ARTHRALGIA [None]
  - ATELECTASIS [None]
  - BACK PAIN [None]
  - CARDIAC FAILURE [None]
  - CEREBRAL ARTERY STENOSIS [None]
  - COLITIS ULCERATIVE [None]
  - CONTUSION [None]
  - CONVULSION [None]
  - CORONARY ARTERY DISEASE [None]
  - COUGH [None]
  - DEFAECATION URGENCY [None]
  - DEPRESSION [None]
  - DERMATITIS [None]
  - DIZZINESS [None]
  - DRUG INEFFECTIVE [None]
  - FAECAL INCONTINENCE [None]
  - FALL [None]
  - FLATULENCE [None]
  - HEADACHE [None]
  - HERNIA [None]
  - HYPERLIPIDAEMIA [None]
  - HYPERTENSION [None]
  - HYPOTENSION [None]
  - ILEITIS [None]
  - IMPAIRED HEALING [None]
  - INFECTION [None]
  - INFLAMMATORY BOWEL DISEASE [None]
  - INTESTINAL PERFORATION [None]
  - INTESTINAL SPASM [None]
  - INTRACRANIAL ANEURYSM [None]
  - JOINT INJURY [None]
  - MIGRAINE [None]
  - MUSCULOSKELETAL CHEST PAIN [None]
  - PAIN [None]
  - PAIN IN EXTREMITY [None]
  - PERIANAL ABSCESS [None]
  - PERIRECTAL ABSCESS [None]
  - PNEUMOPERITONEUM [None]
  - PROCTALGIA [None]
  - PROCTITIS ULCERATIVE [None]
  - PRURITUS ANI [None]
  - PYREXIA [None]
  - SEPSIS [None]
  - SUBARACHNOID HAEMORRHAGE [None]
  - SYNCOPE [None]
  - TACHYCARDIA [None]
  - WHITE BLOOD CELL COUNT INCREASED [None]
